FAERS Safety Report 9018232 (Version 1)
Quarter: 2013Q1

REPORT INFORMATION
  Report Type: Spontaneous
  Country: US (occurrence: None)
  Receive Date: 20130111
  Receipt Date: 20130111
  Transmission Date: 20140127
  Serious: No
  Sender: FDA-Public Use
  Company Number: None

PATIENT
  Sex: Female

DRUGS (2)
  1. BENLYSTA [Suspect]
  2. CYTOXAN [Suspect]

REACTIONS (5)
  - Migraine [None]
  - Fatigue [None]
  - Photophobia [None]
  - Depression [None]
  - Alopecia [None]
